FAERS Safety Report 10290552 (Version 2)
Quarter: 2015Q2

REPORT INFORMATION
  Report Type: Report from Study
  Country: US (occurrence: US)
  Receive Date: 20140710
  Receipt Date: 20150424
  Transmission Date: 20150821
  Serious: Yes (Hospitalization, Other)
  Sender: FDA-Public Use
  Company Number: US-SA-2014SA087761

PATIENT
  Age: 58 Year
  Sex: Female

DRUGS (1)
  1. AUBAGIO [Suspect]
     Active Substance: TERIFLUNOMIDE
     Indication: MULTIPLE SCLEROSIS
     Route: 048
     Dates: start: 20140626, end: 20140627

REACTIONS (13)
  - Urticaria [Unknown]
  - Dyspnoea [Recovering/Resolving]
  - Abdominal pain upper [Unknown]
  - Abdominal pain lower [Unknown]
  - Erythema [Unknown]
  - Cardiac disorder [Unknown]
  - Throat tightness [Unknown]
  - Rash macular [Recovering/Resolving]
  - Pharyngeal oedema [Recovering/Resolving]
  - Anaphylactic reaction [Unknown]
  - Blood pressure increased [Recovering/Resolving]
  - Hypoaesthesia oral [Recovering/Resolving]
  - Swelling [Unknown]

NARRATIVE: CASE EVENT DATE: 20140626
